FAERS Safety Report 6239565-6 (Version None)
Quarter: 2009Q2

REPORT INFORMATION
  Report Type: 
  Country: None (occurrence: None)
  Receive Date: 20090619
  Receipt Date: 20090608
  Transmission Date: 20091009
  Serious: Yes (Life-Threatening)
  Sender: FDA-Public Use
  Company Number: ADR3952009

PATIENT
  Age: 66 Year
  Sex: Female

DRUGS (2)
  1. RAMIPRIL [Suspect]
     Indication: HYPERTENSION
     Dosage: 2.5 MG ORAL
     Route: 048
  2. METOHEXAL (METOPROLOL TARTRATE) [Concomitant]

REACTIONS (1)
  - SINOATRIAL BLOCK [None]
